FAERS Safety Report 13161449 (Version 1)
Quarter: 2017Q1

REPORT INFORMATION
  Report Type: Spontaneous
  Country: JP (occurrence: JP)
  Receive Date: 20170130
  Receipt Date: 20170130
  Transmission Date: 20170428
  Serious: Yes (Other)
  Sender: FDA-Public Use
  Company Number: US-ASTRAZENECA-2017SE10104

PATIENT
  Age: 9 Month
  Sex: Female

DRUGS (8)
  1. SYNAGIS [Suspect]
     Active Substance: PALIVIZUMAB
     Indication: PREMATURE BABY
     Route: 030
     Dates: start: 201610
  2. SYNAGIS [Suspect]
     Active Substance: PALIVIZUMAB
     Indication: PREMATURE BABY
     Route: 030
     Dates: start: 201611
  3. SYNAGIS [Suspect]
     Active Substance: PALIVIZUMAB
     Indication: LOW BIRTH WEIGHT BABY
     Route: 030
     Dates: start: 201611
  4. SYNAGIS [Suspect]
     Active Substance: PALIVIZUMAB
     Indication: LOW BIRTH WEIGHT BABY
     Route: 030
     Dates: start: 201612
  5. SYNAGIS [Suspect]
     Active Substance: PALIVIZUMAB
     Indication: PREMATURE BABY
     Route: 030
     Dates: start: 201609
  6. SYNAGIS [Suspect]
     Active Substance: PALIVIZUMAB
     Indication: LOW BIRTH WEIGHT BABY
     Route: 030
     Dates: start: 201609
  7. SYNAGIS [Suspect]
     Active Substance: PALIVIZUMAB
     Indication: LOW BIRTH WEIGHT BABY
     Route: 030
     Dates: start: 201610
  8. SYNAGIS [Suspect]
     Active Substance: PALIVIZUMAB
     Indication: PREMATURE BABY
     Route: 030
     Dates: start: 201612

REACTIONS (1)
  - Kawasaki^s disease [Recovered/Resolved]

NARRATIVE: CASE EVENT DATE: 20170116
